FAERS Safety Report 13238022 (Version 1)
Quarter: 2017Q1

REPORT INFORMATION
  Report Type: Spontaneous
  Country: CA (occurrence: CA)
  Receive Date: 20170216
  Receipt Date: 20170216
  Transmission Date: 20170428
  Serious: Yes (Disabling, Other)
  Sender: FDA-Public Use
  Company Number: CA-TEVA-739265ACC

PATIENT
  Age: 58 Year
  Sex: Female

DRUGS (1)
  1. NOVO-OLANZAPINE [Suspect]
     Active Substance: OLANZAPINE
     Indication: SCHIZOAFFECTIVE DISORDER
     Dosage: 2.5 MILLIGRAM DAILY;
     Route: 048

REACTIONS (4)
  - Schizophrenia [Recovered/Resolved]
  - Decreased appetite [Recovered/Resolved]
  - Product substitution issue [Recovered/Resolved]
  - Oedema [Recovered/Resolved]
